FAERS Safety Report 5809721-7 (Version None)
Quarter: 2008Q3

REPORT INFORMATION
  Report Type: 
  Country: None (occurrence: None)
  Receive Date: 20080714
  Receipt Date: 20080714
  Transmission Date: 20090109
  Serious: Yes (Hospitalization)
  Sender: FDA-Public Use
  Company Number: None

PATIENT
  Sex: Female
  Weight: 81.4 kg

DRUGS (3)
  1. ZACTIMA 100MG [Suspect]
     Indication: RENAL CELL CARCINOMA
     Dates: start: 20080703, end: 20080710
  2. PLACEBO 100MG [Suspect]
     Indication: RENAL CELL CARCINOMA
     Dates: start: 20080703, end: 20080710
  3. TAXOTERE [Suspect]
     Dates: start: 20080703, end: 20080703

REACTIONS (1)
  - PULMONARY EMBOLISM [None]
